FAERS Safety Report 9988579 (Version 4)
Quarter: 2019Q1

REPORT INFORMATION
  Report Type: Report from Study
  Country: BR (occurrence: BR)
  Receive Date: 20140310
  Receipt Date: 20190329
  Transmission Date: 20190418
  Serious: Yes (Disabling, Other)
  Sender: FDA-Public Use
  Company Number: BR-ROCHE-1358863

PATIENT
  Sex: Female
  Weight: 49 kg

DRUGS (19)
  1. VITAMIN D3 [Concomitant]
     Active Substance: CHOLECALCIFEROL
  2. SELOZOK [Concomitant]
     Active Substance: METOPROLOL SUCCINATE
     Route: 065
  3. TRAMAL [Concomitant]
     Active Substance: TRAMADOL
  4. METICORTEN [Concomitant]
     Active Substance: PREDNISONE
  5. AMIODARONE [Concomitant]
     Active Substance: AMIODARONE
     Indication: ARRHYTHMIA
     Route: 065
  6. SELOZOK [Concomitant]
     Active Substance: METOPROLOL SUCCINATE
     Indication: ARRHYTHMIA
     Dosage: DOSE: 23
     Route: 065
  7. BESEROL [Concomitant]
     Indication: MUSCLE RELAXANT THERAPY
  8. SIMVASTATIN. [Concomitant]
     Active Substance: SIMVASTATIN
     Route: 065
  9. ACTEMRA [Suspect]
     Active Substance: TOCILIZUMAB
     Indication: RHEUMATOID ARTHRITIS
     Dosage: MOST RECENT DOSE OF TOCILIZUMAB (01/JUL/2017)
     Route: 042
     Dates: start: 20130705
  10. CORTISONE [Concomitant]
     Active Substance: CORTISONE\HYDROCORTISONE
     Indication: RHEUMATOID ARTHRITIS
     Route: 065
  11. ANCORON [Concomitant]
     Active Substance: AMIODARONE HYDROCHLORIDE
     Indication: ARRHYTHMIA
     Route: 065
  12. CELEBRA [Concomitant]
     Active Substance: CELECOXIB
  13. ACTEMRA [Suspect]
     Active Substance: TOCILIZUMAB
     Dosage: MOST RECENT DOSE OF TOCILIZUMAB (FEB/2019)
     Route: 042
     Dates: start: 20161101
  14. PRADAXA [Concomitant]
     Active Substance: DABIGATRAN ETEXILATE MESYLATE
     Indication: ARRHYTHMIA
     Route: 065
  15. LISADOR [Suspect]
     Active Substance: DIPYRONE\PROMETHAZINE HYDROCHLORIDE
     Indication: PRODUCT USED FOR UNKNOWN INDICATION
     Route: 065
  16. DIPYRONE [Concomitant]
     Active Substance: DIPYRONE
     Indication: PAIN
  17. SINVASTACOR [Concomitant]
     Active Substance: SIMVASTATIN
     Indication: ARRHYTHMIA
     Route: 065
  18. KETOPROFEN. [Concomitant]
     Active Substance: KETOPROFEN
  19. ACTONEL [Concomitant]
     Active Substance: RISEDRONATE SODIUM

REACTIONS (6)
  - Nausea [Recovering/Resolving]
  - Limb deformity [Not Recovered/Not Resolved]
  - Viral infection [Recovering/Resolving]
  - Asthenia [Not Recovered/Not Resolved]
  - Loss of personal independence in daily activities [Not Recovered/Not Resolved]
  - Arthropathy [Recovering/Resolving]
